FAERS Safety Report 9259925 (Version 1)
Quarter: 2013Q2

REPORT INFORMATION
  Report Type: Spontaneous
  Country: GB (occurrence: GB)
  Receive Date: 20130429
  Receipt Date: 20130429
  Transmission Date: 20140414
  Serious: Yes (Other)
  Sender: FDA-Public Use
  Company Number: GB-ROCHE-1218739

PATIENT
  Age: 63 Year
  Sex: Female

DRUGS (1)
  1. MYCOPHENOLATE MOFETIL [Suspect]
     Indication: HEPATITIS CHRONIC ACTIVE
     Route: 065

REACTIONS (2)
  - Crohn^s disease [Unknown]
  - Diarrhoea [Unknown]
